FAERS Safety Report 15558489 (Version 1)
Quarter: 2018Q4

REPORT INFORMATION
  Report Type: Spontaneous
  Country: US (occurrence: US)
  Receive Date: 20181026
  Receipt Date: 20181026
  Transmission Date: 20190205
  Serious: No
  Sender: FDA-Public Use
  Company Number: None

PATIENT
  Age: 50 Year
  Sex: Female
  Weight: 78.75 kg

DRUGS (13)
  1. BOTOX [Concomitant]
     Active Substance: ONABOTULINUMTOXINA
  2. BUTTERBUR [Concomitant]
  3. VITAMIN B2 [Concomitant]
     Active Substance: RIBOFLAVIN
  4. NABUMETONE. [Concomitant]
     Active Substance: NABUMETONE
  5. VASCEPA [Suspect]
     Active Substance: ICOSAPENT ETHYL
     Indication: BLOOD TRIGLYCERIDES INCREASED
     Dosage: ?          QUANTITY:2 CAPSULE(S);?
     Route: 048
     Dates: start: 20181018
  6. PHENERGAN [Concomitant]
     Active Substance: PROMETHAZINE HYDROCHLORIDE
  7. VITAMIN D3 [Concomitant]
     Active Substance: CHOLECALCIFEROL
  8. CRESTOR [Concomitant]
     Active Substance: ROSUVASTATIN CALCIUM
  9. ASPIRIN. [Concomitant]
     Active Substance: ASPIRIN
  10. TIMOLOL. [Concomitant]
     Active Substance: TIMOLOL
  11. TOPAMAX [Concomitant]
     Active Substance: TOPIRAMATE
  12. COQ10 [Concomitant]
     Active Substance: UBIDECARENONE
  13. MAGNESIUM [Concomitant]
     Active Substance: MAGNESIUM

REACTIONS (4)
  - Arthralgia [None]
  - Gait disturbance [None]
  - Pelvic pain [None]
  - Dysstasia [None]

NARRATIVE: CASE EVENT DATE: 20181019
